FAERS Safety Report 20669680 (Version 2)
Quarter: 2022Q2

REPORT INFORMATION
  Report Type: Spontaneous
  Country: ES (occurrence: ES)
  Receive Date: 20220404
  Receipt Date: 20220408
  Transmission Date: 20220721
  Serious: No
  Sender: FDA-Public Use
  Company Number: ES-BRACCO-2022ES01185

PATIENT
  Age: 41 Year
  Sex: Male

DRUGS (4)
  1. PROHANCE [Suspect]
     Active Substance: GADOTERIDOL
     Indication: Magnetic resonance imaging heart
     Dosage: 24 ML, SINGLE AT 4ML/SEC
     Route: 042
     Dates: start: 20220324, end: 20220324
  2. BISOPROLOL [Concomitant]
     Active Substance: BISOPROLOL
     Dosage: 10 MG, QD
  3. SACUBITRIL\VALSARTAN [Concomitant]
     Active Substance: SACUBITRIL\VALSARTAN
     Dosage: 1 DF, BID (EVERY 12 HOURS)
  4. EPLERENONE [Concomitant]
     Active Substance: EPLERENONE
     Dosage: 50 MG, QD

REACTIONS (3)
  - Hypersensitivity [Recovered/Resolved]
  - Oral pruritus [Recovered/Resolved]
  - Throat irritation [Recovered/Resolved]

NARRATIVE: CASE EVENT DATE: 20220324
